FAERS Safety Report 7549539-0 (Version None)
Quarter: 2011Q2

REPORT INFORMATION
  Report Type: 
  Country: None (occurrence: None)
  Receive Date: 20110615
  Receipt Date: 20090623
  Transmission Date: 20111010
  Serious: Yes (Hospitalization)
  Sender: FDA-Public Use
  Company Number: A0793938A

PATIENT
  Sex: Male
  Weight: 89.5 kg

DRUGS (1)
  1. AVANDIA [Suspect]
     Indication: DIABETES MELLITUS
     Route: 048
     Dates: start: 19990101, end: 20080101

REACTIONS (6)
  - MYOCARDIAL ISCHAEMIA [None]
  - CORONARY ARTERY DISEASE [None]
  - OBSTRUCTION [None]
  - CARDIAC DISORDER [None]
  - FATIGUE [None]
  - HEART RATE IRREGULAR [None]
